FAERS Safety Report 9833764 (Version 1)
Quarter: 2014Q1

REPORT INFORMATION
  Report Type: Spontaneous
  Country: US (occurrence: US)
  Receive Date: 20140122
  Receipt Date: 20140122
  Transmission Date: 20141002
  Serious: No
  Sender: FDA-Public Use
  Company Number: US-BIOGENIDEC-2014BI004345

PATIENT
  Age: 36 Year
  Sex: Female

DRUGS (5)
  1. TECFIDERA [Suspect]
     Indication: MULTIPLE SCLEROSIS
     Route: 048
  2. CELEXA [Concomitant]
  3. XANAX [Concomitant]
  4. OXYCONTIN [Concomitant]
  5. DEPO-PROVERA [Concomitant]

REACTIONS (1)
  - Swelling face [Recovered/Resolved]
